FAERS Safety Report 6203166-6 (Version None)
Quarter: 2009Q2

REPORT INFORMATION
  Report Type: 
  Country: None (occurrence: None)
  Receive Date: 20090526
  Receipt Date: 20090526
  Transmission Date: 20091009
  Serious: Yes (Life-Threatening, Hospitalization)
  Sender: FDA-Public Use
  Company Number: None

PATIENT
  Age: 19 Year
  Sex: Male
  Weight: 67.586 kg

DRUGS (4)
  1. CYMBALTA [Suspect]
     Indication: DEPRESSION
     Dosage: 120 MG IN THE MORNING PO
     Route: 048
     Dates: start: 20090429, end: 20090501
  2. METHADONE [Suspect]
     Indication: PAIN
     Dosage: 25 MG AM AND 30 MG HS PO
     Route: 048
     Dates: start: 20090428, end: 20090521
  3. PROMETHAZINE [Concomitant]
  4. OMEPRAZOLE [Concomitant]

REACTIONS (10)
  - BLOOD GLUCOSE INCREASED [None]
  - BONE PAIN [None]
  - CYANOSIS [None]
  - DEPRESSED LEVEL OF CONSCIOUSNESS [None]
  - GENERAL PHYSICAL HEALTH DETERIORATION [None]
  - MYALGIA [None]
  - RESPIRATORY DEPRESSION [None]
  - SEROTONIN SYNDROME [None]
  - THERAPEUTIC AGENT TOXICITY [None]
  - UNRESPONSIVE TO STIMULI [None]
